FAERS Safety Report 20850500 (Version 1)
Quarter: 2022Q2

REPORT INFORMATION
  Report Type: Spontaneous
  Country: JP (occurrence: JP)
  Receive Date: 20220519
  Receipt Date: 20220519
  Transmission Date: 20220720
  Serious: Yes (Hospitalization, Other)
  Sender: FDA-Public Use
  Company Number: JP-PFIZER INC-202200689430

PATIENT
  Age: 52 Year
  Sex: Female
  Weight: 64 kg

DRUGS (7)
  1. PACLITAXEL [Suspect]
     Active Substance: PACLITAXEL
     Indication: Ovarian cancer
     Dosage: 280 MG, DAILY
     Route: 042
     Dates: start: 20220331, end: 20220331
  2. CARBOPLATIN [Suspect]
     Active Substance: CARBOPLATIN
     Indication: Ovarian cancer
     Dosage: 480 MG, DAILY
     Route: 042
     Dates: start: 20220331, end: 20220331
  3. AMLODIPINE BESYLATE [Suspect]
     Active Substance: AMLODIPINE BESYLATE
     Indication: Hypertension
     Dosage: 2.5 MG, 1X/DAY
     Route: 048
     Dates: end: 20220411
  4. GRANISETRON HYDROCHLORIDE [Concomitant]
     Active Substance: GRANISETRON HYDROCHLORIDE
  5. DEXAMETHASONE SODIUM PHOSPHATE [Concomitant]
     Active Substance: DEXAMETHASONE SODIUM PHOSPHATE
  6. GASTER [Concomitant]
     Active Substance: FAMOTIDINE
  7. BIO-THREE [Concomitant]
     Active Substance: HERBALS

REACTIONS (3)
  - Rash [Recovering/Resolving]
  - Febrile neutropenia [Unknown]
  - Enterocolitis [Unknown]

NARRATIVE: CASE EVENT DATE: 20220408
